FAERS Safety Report 8220286-5 (Version None)
Quarter: 2012Q1

REPORT INFORMATION
  Report Type: 
  Country: None (occurrence: None)
  Receive Date: 20120307
  Receipt Date: 20101130
  Transmission Date: 20120608
  Serious: Yes (Other)
  Sender: FDA-Public Use
  Company Number: PHHY2010US66020

PATIENT
  Age: 76 Year
  Sex: Male
  Weight: 72.6 kg

DRUGS (9)
  1. AFINITOR [Suspect]
     Indication: METASTASIS
     Dosage: 10 MG, QD, ORAL
     Route: 048
     Dates: start: 20100601, end: 20101001
  2. AFINITOR [Suspect]
     Indication: NEUROENDOCRINE TUMOUR
     Dosage: 10 MG, QD, ORAL
     Route: 048
     Dates: start: 20100601, end: 20101001
  3. SANDOSTATIN [Concomitant]
  4. ZOLPIDEM [Concomitant]
  5. AMLODIPINE [Concomitant]
  6. PERCOCET [Concomitant]
  7. SIMVASTATIN [Concomitant]
  8. ATENOLOL [Concomitant]
  9. ZOFRAN [Concomitant]

REACTIONS (6)
  - ANAEMIA [None]
  - PLATELET COUNT DECREASED [None]
  - HAEMOGLOBIN DECREASED [None]
  - MEAN CELL VOLUME DECREASED [None]
  - FATIGUE [None]
  - PNEUMONITIS [None]
